FAERS Safety Report 15777307 (Version 5)
Quarter: 2020Q4

REPORT INFORMATION
  Report Type: Report from Study
  Country: US (occurrence: US)
  Receive Date: 20181231
  Receipt Date: 20201229
  Transmission Date: 20210113
  Serious: No
  Sender: FDA-Public Use
  Company Number: US-CLOVIS ONCOLOGY-CLO-2018-001602

PATIENT
  Sex: Female

DRUGS (10)
  1. RUBRACA [Suspect]
     Active Substance: RUCAPARIB CAMSYLATE
     Indication: OVARIAN CANCER
     Dosage: 300 MG, BID
     Route: 048
     Dates: start: 201810, end: 201810
  2. RUBRACA [Suspect]
     Active Substance: RUCAPARIB CAMSYLATE
     Dosage: 600 MG, BID
     Route: 048
     Dates: start: 201903
  3. RUBRACA [Suspect]
     Active Substance: RUCAPARIB CAMSYLATE
     Dosage: 600 MG, QD
     Route: 048
     Dates: start: 20190606
  4. RUBRACA [Suspect]
     Active Substance: RUCAPARIB CAMSYLATE
     Dosage: 300 MG, BID
     Route: 048
     Dates: start: 202005
  5. RUBRACA [Suspect]
     Active Substance: RUCAPARIB CAMSYLATE
     Indication: OVARIAN CANCER
     Dosage: 600 MG, BID
     Route: 048
     Dates: start: 20181017, end: 201810
  6. RUBRACA [Suspect]
     Active Substance: RUCAPARIB CAMSYLATE
     Dosage: 300 MG, BID
     Route: 048
     Dates: start: 20200204
  7. RUBRACA [Suspect]
     Active Substance: RUCAPARIB CAMSYLATE
     Dosage: 300 MG, QD
     Route: 048
     Dates: start: 20181012
  8. RUBRACA [Suspect]
     Active Substance: RUCAPARIB CAMSYLATE
     Dosage: 600 MG, BID
     Route: 048
     Dates: start: 201810
  9. RUBRACA [Suspect]
     Active Substance: RUCAPARIB CAMSYLATE
     Dosage: 600 MG, QD
     Route: 048
     Dates: start: 201812
  10. RUBRACA [Suspect]
     Active Substance: RUCAPARIB CAMSYLATE
     Dosage: 600 MG, QD
     Route: 048
     Dates: start: 201905

REACTIONS (14)
  - Arthralgia [Not Recovered/Not Resolved]
  - Fatigue [Unknown]
  - Hypoaesthesia [Not Recovered/Not Resolved]
  - Tongue discolouration [Not Recovered/Not Resolved]
  - Nausea [Not Recovered/Not Resolved]
  - Tinnitus [Not Recovered/Not Resolved]
  - Taste disorder [Recovering/Resolving]
  - Muscle spasms [Not Recovered/Not Resolved]
  - Pain in extremity [Unknown]
  - Nail discolouration [Not Recovered/Not Resolved]
  - Laboratory test abnormal [Recovered/Resolved]
  - Muscular weakness [Unknown]
  - Asthenia [Unknown]
  - Product dose omission issue [Unknown]

NARRATIVE: CASE EVENT DATE: 2018
